FAERS Safety Report 4685161-1 (Version None)
Quarter: 2005Q2

REPORT INFORMATION
  Report Type: 
  Country: None (occurrence: None)
  Receive Date: 20050608
  Receipt Date: 20050527
  Transmission Date: 20051028
  Serious: Yes (Other)
  Sender: FDA-Public Use
  Company Number: PHEH2005US06004

PATIENT
  Age: 70 Year
  Sex: Female

DRUGS (3)
  1. AREDIA [Suspect]
  2. ANTIHYPERTENSIVE DRUGS [Concomitant]
  3. ASTHMA MEDICATIONS [Concomitant]

REACTIONS (5)
  - ASEPTIC NECROSIS BONE [None]
  - DENTAL DISCOMFORT [None]
  - IMPAIRED HEALING [None]
  - OSTEONECROSIS [None]
  - TOOTH EXTRACTION [None]
